FAERS Safety Report 15061773 (Version 1)
Quarter: 2018Q2

REPORT INFORMATION
  Report Type: Report from Study
  Country: JP (occurrence: JP)
  Receive Date: 20180625
  Receipt Date: 20180625
  Transmission Date: 20180711
  Serious: Yes (Other)
  Sender: FDA-Public Use
  Company Number: JP-ROCHE-2140481

PATIENT

DRUGS (9)
  1. PEMETREXED. [Suspect]
     Active Substance: PEMETREXED
     Indication: NON-SMALL CELL LUNG CANCER
     Route: 065
  2. VITAMIN B12 [Concomitant]
     Active Substance: CYANOCOBALAMIN
     Route: 065
  3. FOLIC ACID. [Concomitant]
     Active Substance: FOLIC ACID
     Route: 048
  4. VITAMIN B12 [Concomitant]
     Active Substance: CYANOCOBALAMIN
     Route: 065
  5. APREPITANT. [Concomitant]
     Active Substance: APREPITANT
     Route: 065
  6. CISPLATIN. [Suspect]
     Active Substance: CISPLATIN
     Indication: NON-SMALL CELL LUNG CANCER
     Dosage: DISSOLVED IN 500 ML OF 0.9% SALINE SOLUTION AND ADMINISTERED OVER A 1-H PERIOD
     Route: 065
  7. DEXAMETHASONE. [Concomitant]
     Active Substance: DEXAMETHASONE
     Route: 065
  8. BEVACIZUMAB. [Suspect]
     Active Substance: BEVACIZUMAB
     Indication: NON-SMALL CELL LUNG CANCER
     Route: 065
  9. PALONOSETRON. [Concomitant]
     Active Substance: PALONOSETRON HYDROCHLORIDE
     Route: 042

REACTIONS (11)
  - Leukopenia [Recovered/Resolved]
  - Embolism venous [Recovered/Resolved]
  - Renal impairment [Unknown]
  - Blood sodium abnormal [Unknown]
  - Hypertension [Unknown]
  - Blood potassium abnormal [Unknown]
  - Nausea [Recovered/Resolved]
  - Neutropenia [Unknown]
  - Fatigue [Unknown]
  - Proteinuria [Unknown]
  - Decreased appetite [Recovered/Resolved]
